FAERS Safety Report 14342586 (Version 17)
Quarter: 2024Q3

REPORT INFORMATION
  Report Type: Spontaneous
  Country: FR (occurrence: FR)
  Receive Date: 20180102
  Receipt Date: 20240926
  Transmission Date: 20241016
  Serious: Yes (Hospitalization, Other)
  Sender: PFIZER
  Company Number: FR-BIOGARAN-B17001624

PATIENT
  Age: 84 Year
  Sex: Female
  Weight: 68 kg

DRUGS (12)
  1. SPIRONOLACTONE [Interacting]
     Active Substance: SPIRONOLACTONE
     Indication: Hypertension
     Dosage: 25 MG, IN THE MORNING
     Route: 048
     Dates: start: 2016
  2. NEBIVOLOL HYDROCHLORIDE [Suspect]
     Active Substance: NEBIVOLOL HYDROCHLORIDE
     Indication: Hypertension
     Dosage: UNK
     Route: 048
  3. NEBIVOLOL HYDROCHLORIDE [Suspect]
     Active Substance: NEBIVOLOL HYDROCHLORIDE
     Dosage: UNK
  4. PERINDOPRIL ARGININE [Interacting]
     Active Substance: PERINDOPRIL ARGININE
     Indication: Hypertension
     Dosage: 5 MG, 1X/DAY (1 DF, EVERY NIGHT AROUND 07:00)
     Route: 048
     Dates: start: 2017
  5. PERINDOPRIL ARGININE [Interacting]
     Active Substance: PERINDOPRIL ARGININE
     Dosage: 5 MG, QD IN THE EVENING
     Dates: start: 2017
  6. RILMENIDINE [Suspect]
     Active Substance: RILMENIDINE
     Indication: Product used for unknown indication
     Dosage: UNK
     Route: 048
     Dates: start: 2017
  7. RILMENIDINE [Suspect]
     Active Substance: RILMENIDINE
     Dosage: UNK
  8. ACETAMINOPHEN\TRAMADOL [Suspect]
     Active Substance: ACETAMINOPHEN\TRAMADOL
     Indication: Arthralgia
     Dosage: UNK
     Route: 048
  9. HYDROCHLOROTHIAZIDE\VALSARTAN [Interacting]
     Active Substance: HYDROCHLOROTHIAZIDE\VALSARTAN
     Indication: Hypertension
  10. ASPIRIN [Concomitant]
     Active Substance: ASPIRIN
     Indication: Postoperative care
     Dosage: 100 MG, QD
     Route: 065
  11. ASPIRIN [Concomitant]
     Active Substance: ASPIRIN
     Indication: Stent placement
     Dosage: UNK
  12. ALDACTAZINE [Concomitant]
     Active Substance: ALTHIAZIDE\SPIRONOLACTONE
     Indication: Hypertension
     Dosage: 1 DF, QD
     Dates: start: 2016

REACTIONS (18)
  - Abdominal pain [Unknown]
  - Vasculitis [Unknown]
  - Fatigue [Unknown]
  - Tachycardia [Unknown]
  - Arthralgia [Unknown]
  - Diarrhoea [Unknown]
  - Feeling hot [Unknown]
  - Myalgia [Unknown]
  - Labelled drug-drug interaction medication error [Unknown]
  - Palpitations [Unknown]
  - Acute kidney injury [Unknown]
  - Nausea [Unknown]
  - Drug ineffective [Unknown]
  - Urine output increased [Not Recovered/Not Resolved]
  - Asthma [Unknown]
  - Dyspnoea [Unknown]
  - Cough [Unknown]
  - Medication error [Unknown]

NARRATIVE: CASE EVENT DATE: 20160101
